FAERS Safety Report 6546259-6 (Version None)
Quarter: 2010Q1

REPORT INFORMATION
  Report Type: 
  Country: None (occurrence: None)
  Receive Date: 20100122
  Receipt Date: 20091222
  Transmission Date: 20100710
  Serious: No
  Sender: FDA-Public Use
  Company Number: US-BAYER-200940048NA

PATIENT
  Age: 70 Year
  Sex: Male

DRUGS (5)
  1. LEVITRA [Suspect]
     Indication: DRUG USE FOR UNKNOWN INDICATION
     Dosage: UNIT DOSE: 10 MG
  2. LEVITRA [Suspect]
     Dosage: UNIT DOSE: 20 MG
  3. LIPITOR [Concomitant]
  4. PLAVIX [Concomitant]
  5. MAVIK [Concomitant]

REACTIONS (1)
  - ADVERSE EVENT [None]
